FAERS Safety Report 4560263-9 (Version None)
Quarter: 2005Q1

REPORT INFORMATION
  Report Type: 
  Country: None (occurrence: None)
  Receive Date: 20050120
  Receipt Date: 20050120
  Transmission Date: 20050727
  Serious: Yes (Hospitalization, Other)
  Sender: FDA-Public Use
  Company Number: None

PATIENT
  Age: 78 Year
  Sex: Female
  Weight: 74.8435 kg

DRUGS (16)
  1. OMNIPAQUE [Suspect]
     Indication: DIAGNOSTIC PROCEDURE
     Dosage: 125 ML IV OTC
     Route: 042
     Dates: start: 20041015
  2. VALDECOXIB [Suspect]
     Indication: PAIN
     Dosage: 20 MG PO DAILY
     Route: 048
  3. AMOLODIPINE [Concomitant]
  4. ASPIRIN [Concomitant]
  5. BUPROPRIN SA [Concomitant]
  6. GLIPIZIDE [Concomitant]
  7. METFORMIN HCL [Concomitant]
  8. INSULIN [Concomitant]
  9. LISINOPRIL [Concomitant]
  10. RISEDRONATE [Concomitant]
  11. SERTRALINE [Concomitant]
  12. SEPTRA [Concomitant]
  13. COUMADIN [Concomitant]
  14. TOLTERODINE SA [Concomitant]
  15. VALDECOXIB [Concomitant]
  16. VENLAFAXINE [Concomitant]

REACTIONS (2)
  - HAEMODIALYSIS [None]
  - RENAL FAILURE ACUTE [None]
